FAERS Safety Report 21600887 (Version 1)
Quarter: 2022Q4

REPORT INFORMATION
  Report Type: Spontaneous
  Country: FR (occurrence: FR)
  Receive Date: 20221116
  Receipt Date: 20221116
  Transmission Date: 20230112
  Serious: Yes (Life-Threatening, Other)
  Sender: FDA-Public Use
  Company Number: FR-SUN PHARMACEUTICAL INDUSTRIES LTD-2022R1-363886

PATIENT
  Age: 2 Month
  Sex: Female
  Weight: 4.2 kg

DRUGS (2)
  1. MINOXIDIL [Suspect]
     Active Substance: MINOXIDIL
     Indication: Vasodilatation
     Dosage: 0.2 MILLIGRAM/KILOGRAM, DAILY
     Route: 065
  2. MINOXIDIL [Suspect]
     Active Substance: MINOXIDIL
     Dosage: 1.4 MILLIGRAM/KILOGRAM, DAILY
     Route: 065

REACTIONS (5)
  - Toxicity to various agents [Unknown]
  - Cardiopulmonary failure [Unknown]
  - Pericardial effusion [Unknown]
  - Cardiac tamponade [Unknown]
  - Pleural effusion [Recovered/Resolved]
